FAERS Safety Report 25140277 (Version 1)
Quarter: 2025Q1

REPORT INFORMATION
  Report Type: Spontaneous
  Country: US (occurrence: US)
  Receive Date: 20250331
  Receipt Date: 20250331
  Transmission Date: 20250409
  Serious: Yes (Other)
  Sender: Unknown Manufacturer
  Company Number: US-KOANAAP-SML-US-2025-00177

PATIENT
  Age: 53 Month
  Sex: Female

DRUGS (4)
  1. IRINOTECAN [Suspect]
     Active Substance: IRINOTECAN
     Indication: Medulloblastoma recurrent
     Route: 042
  2. CYCLOPHOSPHAMIDE [Suspect]
     Active Substance: CYCLOPHOSPHAMIDE
     Indication: Medulloblastoma recurrent
     Route: 042
  3. ETOPOSIDE [Suspect]
     Active Substance: ETOPOSIDE
     Indication: Medulloblastoma recurrent
     Route: 048
  4. TEMOZOLOMIDE [Suspect]
     Active Substance: TEMOZOLOMIDE
     Indication: Medulloblastoma recurrent
     Route: 048

REACTIONS (6)
  - Therapy partial responder [Unknown]
  - Septic shock [Unknown]
  - Myelosuppression [Unknown]
  - Febrile neutropenia [Unknown]
  - Sepsis [Unknown]
  - Infection [Unknown]
